FAERS Safety Report 13609307 (Version 6)
Quarter: 2017Q3

REPORT INFORMATION
  Report Type: Report from Study
  Country: US (occurrence: BR)
  Receive Date: 20170602
  Receipt Date: 20170807
  Transmission Date: 20171127
  Serious: Yes (Hospitalization, Other)
  Sender: FDA-Public Use
  Company Number: US-SUNOVION-2017SUN002284

PATIENT
  Sex: Female

DRUGS (10)
  1. VASOGARD [Concomitant]
     Active Substance: CILOSTAZOL
     Indication: THROMBOSIS
     Dosage: 50 MG, UNK
     Dates: start: 2002
  2. SOMALGIN [Concomitant]
     Active Substance: ASPIRIN\DIHYDROXYALUMINUM AMINOACETATE ANHYDROUS\MAGNESIUM CARBONATE
     Dosage: 100 MG, UNK
  3. SYMBICORT [Concomitant]
     Active Substance: BUDESONIDE\FORMOTEROL FUMARATE DIHYDRATE
     Indication: BRONCHITIS
     Dosage: 3 DF, BID
     Route: 055
     Dates: start: 2005
  4. LAMOTRIGIN [Concomitant]
     Active Substance: LAMOTRIGINE
     Indication: DEPRESSION
     Dosage: 50 MG, QD
     Route: 048
  5. INDACATEROL AND GLYCOPYRROLATE [Suspect]
     Active Substance: GLYCOPYRROLATE\INDACATEROL MALEATE
     Indication: EMPHYSEMA
  6. METFORMIN [Concomitant]
     Active Substance: METFORMIN HYDROCHLORIDE
     Indication: DIABETES MELLITUS
     Dosage: 1000 MG, QD
     Route: 048
  7. INDACATEROL AND GLYCOPYRROLATE [Suspect]
     Active Substance: GLYCOPYRROLATE\INDACATEROL MALEATE
     Indication: CHRONIC OBSTRUCTIVE PULMONARY DISEASE
     Dosage: 1 DF (INDACATEROL 110 UG AND GLYCOPYRRONIUM BROMIDE 50 UG), QD
     Route: 055
     Dates: start: 201704
  8. CITALOPRAM [Concomitant]
     Active Substance: CITALOPRAM HYDROBROMIDE
     Indication: DEPRESSION
     Dosage: 20 MG, UNK
  9. PREDNISONE. [Concomitant]
     Active Substance: PREDNISONE
     Dosage: UNK
  10. SOMALGIN CARDIO [Concomitant]
     Active Substance: ASPIRIN\DIHYDROXYALUMINUM AMINOACETATE ANHYDROUS\MAGNESIUM CARBONATE
     Indication: THROMBOSIS
     Dosage: 200/600 MG, BID
     Route: 055
     Dates: start: 2002

REACTIONS (9)
  - Vitamin B12 deficiency [Not Recovered/Not Resolved]
  - Lip pain [Not Recovered/Not Resolved]
  - General physical health deterioration [Unknown]
  - Dyspnoea [Recovering/Resolving]
  - Malaise [Unknown]
  - Decreased appetite [Not Recovered/Not Resolved]
  - Hypophagia [Not Recovered/Not Resolved]
  - Chapped lips [Not Recovered/Not Resolved]
  - Wheezing [Unknown]
